FAERS Safety Report 17339381 (Version 6)
Quarter: 2023Q2

REPORT INFORMATION
  Report Type: Spontaneous
  Country: US (occurrence: US)
  Receive Date: 20200129
  Receipt Date: 20230414
  Transmission Date: 20230722
  Serious: No
  Sender: FDA-Public Use
  Company Number: US-PFIZER INC-2020039104

PATIENT
  Age: 53 Year
  Sex: Female
  Weight: 88 kg

DRUGS (4)
  1. XELJANZ XR [Suspect]
     Active Substance: TOFACITINIB CITRATE
     Indication: Rheumatoid arthritis
     Dosage: 11 MG
  2. XELJANZ XR [Suspect]
     Active Substance: TOFACITINIB CITRATE
     Indication: Osteoarthritis
     Dosage: 11 MG, 1X/DAY
     Route: 048
     Dates: start: 2017
  3. MELOXICAM [Suspect]
     Active Substance: MELOXICAM
     Indication: Analgesic therapy
     Dosage: 15 MG, 1X/DAY
     Route: 048
     Dates: start: 2016
  4. METFORMIN [Concomitant]
     Active Substance: METFORMIN HYDROCHLORIDE
     Indication: Weight decreased
     Dosage: 1000 MG, 2X/DAY

REACTIONS (10)
  - Illness [Not Recovered/Not Resolved]
  - Limb discomfort [Unknown]
  - Arthralgia [Unknown]
  - Inflammation [Unknown]
  - Arthritis [Unknown]
  - Pain [Unknown]
  - Discomfort [Unknown]
  - Nasopharyngitis [Unknown]
  - Road traffic accident [Unknown]
  - Weight decreased [Unknown]

NARRATIVE: CASE EVENT DATE: 20221229
